FAERS Safety Report 6434471-6 (Version None)
Quarter: 2009Q4

REPORT INFORMATION
  Report Type: 
  Country: None (occurrence: None)
  Receive Date: 20091110
  Receipt Date: 20091029
  Transmission Date: 20100525
  Serious: Yes (Other)
  Sender: FDA-Public Use
  Company Number: TW-PFIZER INC-2009282707

PATIENT
  Age: 40 Year
  Sex: Male
  Weight: 61.5 kg

DRUGS (5)
  1. SUNITINIB MALATE [Suspect]
     Indication: HEPATIC NEOPLASM MALIGNANT
     Dosage: 37.5 MG, 1X/DAY
     Dates: start: 20090219, end: 20090806
  2. INDERAL [Concomitant]
     Indication: HYPERTENSION
     Dosage: 10 MG, 2X/DAY
     Dates: start: 20090611, end: 20090813
  3. UREA [Concomitant]
     Indication: PALMAR-PLANTAR ERYTHRODYSAESTHESIA SYNDROME
     Dosage: TWICE DAILY
     Dates: start: 20090319, end: 20090812
  4. SMP [Concomitant]
     Indication: DIARRHOEA
     Dosage: 1 TAB, 3X/DAY
     Dates: start: 20090709, end: 20090813
  5. KAOPECTIN [Concomitant]
     Indication: DIARRHOEA
     Dosage: 20 ML, 1X/DAY, AS NEEDED
     Dates: start: 20090625, end: 20090810

REACTIONS (2)
  - NEOPLASM MALIGNANT [None]
  - TONSIL CANCER [None]
